FAERS Safety Report 22372303 (Version 1)
Quarter: 2023Q2

REPORT INFORMATION
  Report Type: Spontaneous
  Country: BR (occurrence: BR)
  Receive Date: 20230526
  Receipt Date: 20230526
  Transmission Date: 20230722
  Serious: Yes (Hospitalization, Other)
  Sender: FDA-Public Use
  Company Number: BR-002147023-NVSC2023BR117379

PATIENT
  Age: 23 Year
  Sex: Male

DRUGS (6)
  1. EVEROLIMUS [Suspect]
     Active Substance: EVEROLIMUS
     Indication: Intestinal transplant
     Dosage: INITIATED ON THE 10TH POD, TARGETED TO A 4-6 NG/ML TROUGH LEVEL
     Route: 065
  2. EVEROLIMUS [Suspect]
     Active Substance: EVEROLIMUS
     Indication: Immunosuppressant drug therapy
  3. TACROLIMUS [Concomitant]
     Active Substance: TACROLIMUS
     Indication: Intestinal transplant
     Dosage: 0.15 MG/KG (INITIAL DOSE), TARGET RANGE FOR TROUGH LEVEL OF 20-25 NG/ML
     Route: 065
  4. TACROLIMUS [Concomitant]
     Active Substance: TACROLIMUS
     Indication: Immunosuppressant drug therapy
  5. PREDNISONE [Concomitant]
     Active Substance: PREDNISONE
     Indication: Intestinal transplant
     Dosage: 20 MG
     Route: 065
  6. PREDNISONE [Concomitant]
     Active Substance: PREDNISONE
     Indication: Immunosuppressant drug therapy

REACTIONS (3)
  - Pericardial effusion [Unknown]
  - Serositis [Unknown]
  - Product use in unapproved indication [Unknown]
